FAERS Safety Report 4720744-1 (Version None)
Quarter: 2005Q3

REPORT INFORMATION
  Report Type: 
  Country: None (occurrence: None)
  Receive Date: 20050719
  Receipt Date: 20050705
  Transmission Date: 20060218
  Serious: Yes (Death, Hospitalization, Other)
  Sender: FDA-Public Use
  Company Number: 2004117310

PATIENT
  Age: 37 Year
  Sex: Female
  Weight: 65.7716 kg

DRUGS (15)
  1. NEURONTIN [Suspect]
     Indication: ALCOHOLIC SEIZURE
     Dosage: 300 MG (100 MG,3 IN 1 D); 1800 MG (600 MG,3 IN 1D)
     Dates: start: 19951201
  2. NEURONTIN [Suspect]
     Indication: BIPOLAR DISORDER
     Dosage: 300 MG (100 MG,3 IN 1 D); 1800 MG (600 MG,3 IN 1D)
     Dates: start: 19951201
  3. NEURONTIN [Suspect]
     Indication: MOVEMENT DISORDER
     Dosage: 300 MG (100 MG,3 IN 1 D); 1800 MG (600 MG,3 IN 1D)
     Dates: start: 19951201
  4. NEURONTIN [Suspect]
     Indication: PAIN
     Dosage: 300 MG (100 MG,3 IN 1 D); 1800 MG (600 MG,3 IN 1D)
     Dates: start: 19951201
  5. NEURONTIN [Suspect]
     Indication: ALCOHOLIC SEIZURE
     Dosage: 300 MG (100 MG,3 IN 1 D); 1800 MG (600 MG,3 IN 1D)
     Dates: start: 20021016
  6. NEURONTIN [Suspect]
     Indication: BIPOLAR DISORDER
     Dosage: 300 MG (100 MG,3 IN 1 D); 1800 MG (600 MG,3 IN 1D)
     Dates: start: 20021016
  7. NEURONTIN [Suspect]
     Indication: MOVEMENT DISORDER
     Dosage: 300 MG (100 MG,3 IN 1 D); 1800 MG (600 MG,3 IN 1D)
     Dates: start: 20021016
  8. NEURONTIN [Suspect]
     Indication: PAIN
     Dosage: 300 MG (100 MG,3 IN 1 D); 1800 MG (600 MG,3 IN 1D)
     Dates: start: 20021016
  9. IBUPROFEN [Suspect]
     Indication: ILL-DEFINED DISORDER
  10. AMITRIPTYLINE HYDROCHLORIDE [Suspect]
     Indication: ILL-DEFINED DISORDER
  11. NORTRIPTYLINE HCL [Suspect]
     Indication: ILL-DEFINED DISORDER
  12. VENLAFAXINE HCL [Suspect]
     Indication: ILL-DEFINED DISORDER
  13. OXAZEPAM [Concomitant]
  14. BENZODIAZEPINE DERIVATIVES (BENZODIAZEPINE DERIVATIVES) [Concomitant]
  15. OPIOIDS (OPIOIDS) [Concomitant]

REACTIONS (13)
  - ACCIDENTAL OVERDOSE [None]
  - BACK PAIN [None]
  - COMPLETED SUICIDE [None]
  - CONSCIOUSNESS FLUCTUATING [None]
  - DEPRESSED LEVEL OF CONSCIOUSNESS [None]
  - DEPRESSION [None]
  - DRUG DEPENDENCE [None]
  - DRUG INEFFECTIVE [None]
  - HOMICIDAL IDEATION [None]
  - INTENTIONAL MISUSE [None]
  - LOSS OF CONSCIOUSNESS [None]
  - MULTIPLE DRUG OVERDOSE ACCIDENTAL [None]
  - NECK PAIN [None]
